FAERS Safety Report 20867520 (Version 1)
Quarter: 2022Q2

REPORT INFORMATION
  Report Type: Spontaneous
  Country: US (occurrence: US)
  Receive Date: 20220524
  Receipt Date: 20220524
  Transmission Date: 20220721
  Serious: No
  Sender: FDA-Public Use
  Company Number: US-BRISTOL-MYERS SQUIBB COMPANY-2022-031090

PATIENT
  Age: 66 Year
  Sex: Male
  Weight: 92.079 kg

DRUGS (2)
  1. REVLIMID [Suspect]
     Active Substance: LENALIDOMIDE
     Indication: Plasma cell myeloma
     Dosage: 21 D ON,7 D OFF
     Route: 048
     Dates: start: 20220215
  2. REVLIMID [Suspect]
     Active Substance: LENALIDOMIDE
     Dosage: 10 MG QD*21 DAYS ON,7 DAYS OFF FOR HIS NEXT CYCLE

REACTIONS (1)
  - Diarrhoea [Unknown]
